FAERS Safety Report 19709997 (Version 3)
Quarter: 2022Q1

REPORT INFORMATION
  Report Type: Spontaneous
  Country: CN (occurrence: CN)
  Receive Date: 20210817
  Receipt Date: 20220302
  Transmission Date: 20220423
  Serious: Yes (Hospitalization)
  Sender: FDA-Public Use
  Company Number: CN-JNJFOC-20210815969

PATIENT
  Sex: Male

DRUGS (1)
  1. RISPERDAL [Suspect]
     Active Substance: RISPERIDONE
     Indication: Schizophrenia
     Route: 048

REACTIONS (4)
  - Hospitalisation [Unknown]
  - Product odour abnormal [Unknown]
  - Product complaint [Unknown]
  - Sexual inhibition [Unknown]

NARRATIVE: CASE EVENT DATE: 20120101
